FAERS Safety Report 6048945-3 (Version None)
Quarter: 2009Q1

REPORT INFORMATION
  Report Type: 
  Country: None (occurrence: None)
  Receive Date: 20090123
  Receipt Date: 20090113
  Transmission Date: 20090719
  Serious: Yes (Hospitalization, Other)
  Sender: FDA-Public Use
  Company Number: US-ELI_LILLY_AND_COMPANY-US200812002366

PATIENT
  Sex: Male
  Weight: 117.91 kg

DRUGS (24)
  1. BYETTA [Suspect]
     Dosage: 10 UG, 2/D
     Route: 065
     Dates: start: 20051105, end: 20070701
  2. AMITRIPTYLINE HCL [Concomitant]
     Dosage: UNK, UNKNOWN
  3. GLIPIZIDE [Concomitant]
     Dosage: UNK, UNKNOWN
  4. AVANDAMET [Concomitant]
     Dosage: UNK, UNKNOWN
  5. NIASPAN [Concomitant]
     Dosage: UNK, UNKNOWN
  6. GLIMEPIRIDE [Concomitant]
     Dosage: UNK, UNKNOWN
  7. CELEBREX [Concomitant]
     Dosage: UNK, UNKNOWN
  8. TESTOSTERONE [Concomitant]
     Dosage: UNK, UNKNOWN
  9. VIGAMOX [Concomitant]
     Dosage: UNK, UNKNOWN
  10. BUSPIRONE HCL [Concomitant]
     Dosage: UNK, UNKNOWN
  11. AVANDIA [Concomitant]
     Dosage: UNK, UNKNOWN
  12. METHOCARBAMOL [Concomitant]
     Dosage: UNK, UNKNOWN
  13. METFORMIN HCL [Concomitant]
     Dosage: UNK, UNKNOWN
  14. VICODIN [Concomitant]
     Dosage: UNK, UNKNOWN
  15. FENTANYL CITRATE [Concomitant]
     Dosage: UNK, UNKNOWN
  16. LOPID [Concomitant]
     Dosage: UNK, UNKNOWN
  17. OXYCODONE HCL [Concomitant]
     Dosage: UNK, UNKNOWN
  18. VYTORIN [Concomitant]
     Dosage: UNK, UNKNOWN
  19. DULOXETINE [Concomitant]
     Dosage: UNK, UNKNOWN
  20. LISINOPRIL [Concomitant]
     Dosage: UNK, UNKNOWN
  21. ZOLOFT [Concomitant]
     Dosage: UNK, UNKNOWN
  22. CIALIS [Concomitant]
     Dosage: UNK, UNKNOWN
  23. DELATESTRYL [Concomitant]
     Dosage: UNK, UNKNOWN
  24. ASPIRIN [Concomitant]
     Dosage: UNK, UNKNOWN

REACTIONS (1)
  - PANCREATITIS [None]
